FAERS Safety Report 9112918 (Version 2)
Quarter: 2013Q3

REPORT INFORMATION
  Report Type: Report from Study
  Country: AU (occurrence: AU)
  Receive Date: 20130211
  Receipt Date: 20130927
  Transmission Date: 20140515
  Serious: Yes (Other)
  Sender: FDA-Public Use
  Company Number: AU-ROCHE-1189245

PATIENT
  Sex: Female

DRUGS (4)
  1. LUCENTIS [Suspect]
     Indication: AGE-RELATED MACULAR DEGENERATION
     Route: 050
     Dates: start: 20121125
  2. LUCENTIS [Suspect]
     Indication: CHOROIDAL NEOVASCULARISATION
     Route: 050
     Dates: start: 20130103
  3. LUCENTIS [Suspect]
     Route: 050
     Dates: start: 20130129
  4. LUCENTIS [Suspect]
     Dosage: DOSE 0.5MG 0.5ML
     Route: 050

REACTIONS (9)
  - Vomiting [Recovering/Resolving]
  - Injection site pain [Recovering/Resolving]
  - Nausea [Unknown]
  - Visual acuity reduced [Unknown]
  - Inappropriate schedule of drug administration [Unknown]
  - Visual impairment [Unknown]
  - Vision blurred [Unknown]
  - Metamorphopsia [Not Recovered/Not Resolved]
  - No therapeutic response [Unknown]
